FAERS Safety Report 23516212 (Version 1)
Quarter: 2024Q1

REPORT INFORMATION
  Report Type: Spontaneous
  Country: CA (occurrence: CA)
  Receive Date: 20240213
  Receipt Date: 20240213
  Transmission Date: 20240409
  Serious: Yes (Other)
  Sender: FDA-Public Use
  Company Number: CA-CELLTRION INC.-2024CA003293

PATIENT

DRUGS (2)
  1. INFLECTRA [Suspect]
     Active Substance: INFLIXIMAB-DYYB
     Indication: Colitis ulcerative
     Dosage: 10 MG/KG, INDUCTION WEEK 0, 1, 2 THEN MAINTENANCE EVERY 4 WEEKS
     Route: 042
  2. INFLECTRA [Suspect]
     Active Substance: INFLIXIMAB-DYYB
     Dosage: 800 MG INDUCTION WEEK 0, 1, 2 THEN MAINTENANCE EVERY 4 WEEKS
     Route: 042
     Dates: start: 20240205

REACTIONS (2)
  - Clostridium difficile infection [Recovered/Resolved]
  - Off label use [Unknown]
